FAERS Safety Report 14553550 (Version 1)
Quarter: 2018Q1

REPORT INFORMATION
  Report Type: Spontaneous
  Country: US (occurrence: US)
  Receive Date: 20180214
  Receipt Date: 20180214
  Transmission Date: 20180509
  Serious: No
  Sender: FDA-Public Use
  Company Number: None

PATIENT
  Sex: Female

DRUGS (1)
  1. KRATOM [Suspect]
     Active Substance: MITRAGYNINE\HERBALS

REACTIONS (3)
  - Nausea [None]
  - Vaginal haemorrhage [None]
  - Dysfunctional uterine bleeding [None]
